FAERS Safety Report 23038545 (Version 1)
Quarter: 2023Q4

REPORT INFORMATION
  Report Type: Report from Study
  Country: US (occurrence: US)
  Receive Date: 20231006
  Receipt Date: 20231006
  Transmission Date: 20240109
  Serious: Yes (Other)
  Sender: FDA-Public Use
  Company Number: US-JNJFOC-20230971499

PATIENT
  Age: 26 Year
  Sex: Male

DRUGS (2)
  1. SPRAVATO [Suspect]
     Active Substance: ESKETAMINE
     Indication: Depression
     Dosage: ^56 MG, 1 TOTAL DOSES^
     Dates: start: 20230607, end: 20230607
  2. SPRAVATO [Suspect]
     Active Substance: ESKETAMINE
     Dosage: ^84 MG, 14 TOTAL DOSES^.?ITS BEEN 3 WEEKS AND WAS USING SPRAVATO BIWEEKLY.
     Dates: start: 20230610, end: 20230916

REACTIONS (4)
  - Suicidal ideation [Unknown]
  - Depressed mood [Unknown]
  - Decreased appetite [Unknown]
  - Sleep disorder [Unknown]

NARRATIVE: CASE EVENT DATE: 20230901
